FAERS Safety Report 4557882-2 (Version None)
Quarter: 2005Q1

REPORT INFORMATION
  Report Type: 
  Country: None (occurrence: None)
  Receive Date: 20050121
  Receipt Date: 20031202
  Transmission Date: 20050727
  Serious: Yes (Other)
  Sender: FDA-Public Use
  Company Number: US-BRISTOL-MYERS SQUIBB COMPANY-12446704

PATIENT
  Age: 70 Year
  Sex: Male
  Weight: 85 kg

DRUGS (5)
  1. SERZONE [Suspect]
     Indication: DEPRESSION
     Dosage: THERAPY FROM - ^ABOUT A YEAR AND A HALF AGO^
     Route: 048
  2. HYDROXYZINE [Concomitant]
  3. LIBRIUM [Concomitant]
  4. DILANTIN [Concomitant]
  5. CHLORDIAZEPOXIDE [Concomitant]

REACTIONS (1)
  - LIVER DISORDER [None]
